FAERS Safety Report 9120933 (Version 3)
Quarter: 2013Q2

REPORT INFORMATION
  Report Type: Spontaneous
  Country: JP (occurrence: JP)
  Receive Date: 20130226
  Receipt Date: 20130418
  Transmission Date: 20140414
  Serious: Yes (Other)
  Sender: FDA-Public Use
  Company Number: JP-GLAXOSMITHKLINE-B0869806A

PATIENT
  Age: 56 Year
  Sex: Male

DRUGS (7)
  1. LAMICTAL [Suspect]
     Indication: EPILEPSY
     Dosage: 25MG PER DAY
     Route: 048
     Dates: start: 20130104, end: 20130117
  2. LAMICTAL [Suspect]
     Indication: EPILEPSY
     Dosage: 25MG TWICE PER DAY
     Route: 048
     Dates: start: 20130118, end: 20130131
  3. LAMICTAL [Suspect]
     Indication: EPILEPSY
     Dosage: 50MG TWICE PER DAY
     Route: 048
     Dates: start: 20130201, end: 20130207
  4. LAMICTAL [Suspect]
     Indication: EPILEPSY
     Dosage: 75MG TWICE PER DAY
     Route: 048
     Dates: start: 20130208, end: 20130214
  5. LAMICTAL [Suspect]
     Indication: EPILEPSY
     Dosage: 100MG TWICE PER DAY
     Route: 048
     Dates: start: 20130215, end: 20130220
  6. ZONISAMIDE [Concomitant]
     Indication: EPILEPSY
     Dosage: 100MG TWICE PER DAY
     Route: 048
     Dates: start: 20121122
  7. GASPORT [Concomitant]
     Indication: GASTRIC ULCER
     Dosage: 20MG TWICE PER DAY
     Route: 048
     Dates: start: 20121122

REACTIONS (10)
  - Oculomucocutaneous syndrome [Recovered/Resolved]
  - Epilepsy [Unknown]
  - Epilepsy [Unknown]
  - Ocular hyperaemia [Unknown]
  - Eye swelling [Unknown]
  - Eyelid oedema [Unknown]
  - Conjunctival hyperaemia [Unknown]
  - Eye discharge [Unknown]
  - Blepharosynechia [Unknown]
  - Erythema of eyelid [Unknown]
